FAERS Safety Report 24259166 (Version 1)
Quarter: 2024Q3

REPORT INFORMATION
  Report Type: Report from Study
  Country: FR (occurrence: FR)
  Receive Date: 20240828
  Receipt Date: 20240828
  Transmission Date: 20241016
  Serious: Yes (Other)
  Sender: MYLAN
  Company Number: FR-AstraZeneca-2024A184042

PATIENT
  Sex: Male
  Weight: 84 kg

DRUGS (3)
  1. GEMCITABINE [Suspect]
     Active Substance: GEMCITABINE
     Indication: Bile duct cancer
     Dosage: UNK UNK, Q3W (EVERY THREE WEEKS)
     Route: 065
     Dates: start: 20240326, end: 20240625
  2. CISPLATIN [Suspect]
     Active Substance: CISPLATIN
     Indication: Bile duct cancer
     Dosage: UNK UNK, Q3W (EVERY THREE WEEKS)
     Route: 065
     Dates: start: 20240326, end: 20240625
  3. IMFINZI [Suspect]
     Active Substance: DURVALUMAB
     Indication: Bile duct cancer
     Dosage: 1500 MILLIGRAM
     Route: 042
     Dates: start: 20240326, end: 20240618

REACTIONS (4)
  - Ischaemic stroke [Unknown]
  - Lower gastrointestinal haemorrhage [Unknown]
  - Thrombocytopenia [Unknown]
  - Off label use [Unknown]
